FAERS Safety Report 21565503 (Version 2)
Quarter: 2022Q4

REPORT INFORMATION
  Report Type: Spontaneous
  Country: CA (occurrence: CA)
  Receive Date: 20221108
  Receipt Date: 20221203
  Transmission Date: 20230112
  Serious: Yes (Other)
  Sender: FDA-Public Use
  Company Number: CA-002147023-NVSC2022CA248389

PATIENT
  Sex: Female

DRUGS (1)
  1. LETROZOLE [Suspect]
     Active Substance: LETROZOLE
     Indication: Ovarian cancer
     Dosage: 2.5 MG
     Route: 048
     Dates: start: 201712, end: 20210113

REACTIONS (3)
  - Ovarian cancer [Unknown]
  - Malignant neoplasm progression [Unknown]
  - Off label use [Unknown]

NARRATIVE: CASE EVENT DATE: 20171201
